FAERS Safety Report 4694253-2 (Version None)
Quarter: 2005Q2

REPORT INFORMATION
  Report Type: 
  Country: None (occurrence: None)
  Receive Date: 20050620
  Receipt Date: 20050607
  Transmission Date: 20051028
  Serious: Yes (Other)
  Sender: FDA-Public Use
  Company Number: US-JNJFOC-20050106202

PATIENT
  Sex: Male
  Weight: 79.38 kg

DRUGS (7)
  1. RISPERDAL [Suspect]
     Indication: AGGRESSION
     Route: 049
  2. RISPERDAL [Suspect]
     Dosage: 1 MG IN AM AND 2 MG (TIME NOT SPECIFIED)
     Route: 049
  3. LAMOTRIGINE [Concomitant]
  4. DEPAKOTE [Concomitant]
  5. ZOLOFT [Concomitant]
     Indication: DEPRESSION
     Route: 049
  6. INH [Concomitant]
     Indication: TUBERCULIN TEST POSITIVE
  7. NEURONTIN [Concomitant]

REACTIONS (4)
  - HAEMATOCRIT DECREASED [None]
  - HAEMOGLOBIN DECREASED [None]
  - RED BLOOD CELL COUNT DECREASED [None]
  - WHITE BLOOD CELL COUNT DECREASED [None]
